FAERS Safety Report 5832844-3 (Version None)
Quarter: 2008Q3

REPORT INFORMATION
  Report Type: 
  Country: None (occurrence: None)
  Receive Date: 20080804
  Receipt Date: 20080723
  Transmission Date: 20090109
  Serious: Yes (Other)
  Sender: FDA-Public Use
  Company Number: JP-PFIZER INC-2008062151

PATIENT
  Sex: Female

DRUGS (4)
  1. EPLERENONE [Suspect]
     Indication: HYPERTENSION
     Dosage: DAILY DOSE:50MG
     Route: 048
  2. ALDACTONE [Suspect]
     Indication: HYPERTENSION
  3. NU LOTAN [Suspect]
  4. MAGNESIUM OXIDE [Concomitant]
     Dosage: DAILY DOSE:660MG
     Route: 048

REACTIONS (1)
  - PLATELET COUNT DECREASED [None]
